FAERS Safety Report 9098361 (Version 1)
Quarter: 2013Q1

REPORT INFORMATION
  Report Type: Spontaneous
  Country: US (occurrence: US)
  Receive Date: 20130213
  Receipt Date: 20130213
  Transmission Date: 20140127
  Serious: Yes (Life-Threatening, Other)
  Sender: FDA-Public Use
  Company Number: CHPA2013US002832

PATIENT
  Age: 53 Year
  Sex: Female

DRUGS (4)
  1. MAALOX UNKNOWN [Suspect]
     Indication: DYSPEPSIA
     Dosage: UNK, UNK
     Route: 048
     Dates: start: 20130206
  2. GLIPIZIDE [Concomitant]
     Dates: start: 201301
  3. LANTUS [Concomitant]
     Dosage: UNK, UNK
  4. METFORMIN [Concomitant]

REACTIONS (4)
  - Abdominal pain upper [Recovered/Resolved]
  - Blood glucose increased [Not Recovered/Not Resolved]
  - Malaise [Recovered/Resolved]
  - Feeling abnormal [Recovered/Resolved]
